FAERS Safety Report 4851803-0 (Version None)
Quarter: 2005Q4

REPORT INFORMATION
  Report Type: 
  Country: None (occurrence: None)
  Receive Date: 20051213
  Receipt Date: 20051201
  Transmission Date: 20060501
  Serious: Yes (Other)
  Sender: FDA-Public Use
  Company Number: US-JNJFOC-20051201042

PATIENT
  Sex: Female
  Weight: 79.38 kg

DRUGS (28)
  1. REMICADE [Suspect]
     Indication: RHEUMATOID ARTHRITIS
     Route: 042
  2. ASPIRIN [Concomitant]
  3. CELEBREX [Concomitant]
     Dosage: STARTED ONE YEAR AGO
  4. SYNTHROID [Concomitant]
     Dosage: LONG TERM
  5. FOSAMAX [Concomitant]
  6. LOVASTATIN [Concomitant]
  7. METHOTREXATE [Concomitant]
  8. ARTHROGENX [Concomitant]
  9. B12 [Concomitant]
  10. FOLATE [Concomitant]
  11. BETA CAROTENE [Concomitant]
  12. BILBERRY [Concomitant]
  13. ASCORBIC ACID [Concomitant]
  14. VITAMIN D [Concomitant]
  15. VITAMIN E [Concomitant]
  16. COD LIVER OIL [Concomitant]
  17. DIABETONE [Concomitant]
  18. MEDCAPS DPO [Concomitant]
  19. MELATONIN [Concomitant]
  20. M.V.I. [Concomitant]
  21. M.V.I. [Concomitant]
  22. M.V.I. [Concomitant]
  23. M.V.I. [Concomitant]
  24. M.V.I. [Concomitant]
  25. M.V.I. [Concomitant]
  26. M.V.I. [Concomitant]
  27. M.V.I. [Concomitant]
  28. OSCAL [Concomitant]

REACTIONS (1)
  - BREAST CANCER [None]
